FAERS Safety Report 21482051 (Version 2)
Quarter: 2022Q4

REPORT INFORMATION
  Report Type: Report from Study
  Country: US (occurrence: US)
  Receive Date: 20221020
  Receipt Date: 20221221
  Transmission Date: 20230112
  Serious: Yes (Hospitalization, Other)
  Sender: FDA-Public Use
  Company Number: US-BoehringerIngelheim-2022-BI-193189

PATIENT
  Age: 79 Year
  Sex: Male

DRUGS (2)
  1. OFEV [Suspect]
     Active Substance: NINTEDANIB
     Indication: Idiopathic pulmonary fibrosis
     Route: 048
     Dates: start: 20220830
  2. OFEV [Suspect]
     Active Substance: NINTEDANIB
     Route: 048

REACTIONS (10)
  - Vomiting [Unknown]
  - Diarrhoea [Unknown]
  - Blood sodium decreased [Unknown]
  - COVID-19 [Unknown]
  - Blood potassium decreased [Unknown]
  - Infection [Unknown]
  - Prosthetic cardiac valve regurgitation [Unknown]
  - Cerebral haemorrhage [Unknown]
  - Nausea [Unknown]
  - Dehydration [Unknown]

NARRATIVE: CASE EVENT DATE: 20220101
